FAERS Safety Report 13436855 (Version 1)
Quarter: 2017Q2

REPORT INFORMATION
  Report Type: Report from Study
  Country: JP (occurrence: JP)
  Receive Date: 20170413
  Receipt Date: 20170413
  Transmission Date: 20170830
  Serious: Yes (Death, Other)
  Sender: FDA-Public Use
  Company Number: PHHY2009JP074773

PATIENT
  Age: 38 Year
  Sex: Female
  Weight: 48 kg

DRUGS (18)
  1. XELODA [Concomitant]
     Active Substance: CAPECITABINE
     Indication: PRODUCT USED FOR UNKNOWN INDICATION
     Dosage: 2400 MG, UNK
     Route: 048
     Dates: start: 20090728, end: 20090810
  2. XELODA [Concomitant]
     Active Substance: CAPECITABINE
     Dosage: 2400 MG, UNK
     Route: 048
     Dates: start: 20090915, end: 20090928
  3. TRASTUZUMAB [Concomitant]
     Active Substance: TRASTUZUMAB
     Indication: PRODUCT USED FOR UNKNOWN INDICATION
     Route: 065
     Dates: start: 20071225, end: 20090721
  4. TS-1 [Concomitant]
     Active Substance: GIMERACIL\OTERACIL\TEGAFUR
     Indication: PRODUCT USED FOR UNKNOWN INDICATION
     Route: 065
     Dates: start: 20081118, end: 20090519
  5. XELODA [Concomitant]
     Active Substance: CAPECITABINE
     Dosage: 2400 MG, UNK
     Route: 048
     Dates: start: 20090825, end: 20090907
  6. LOXONIN [Concomitant]
     Active Substance: LOXOPROFEN SODIUM
     Indication: CANCER PAIN
     Dosage: UNK, QD
     Route: 048
     Dates: end: 20100207
  7. SELBEX [Concomitant]
     Active Substance: TEPRENONE
     Indication: GASTRITIS PROPHYLAXIS
     Dosage: UNK, QD
     Route: 048
     Dates: start: 20080527, end: 20100207
  8. 5-FU [Concomitant]
     Active Substance: FLUOROURACIL
     Indication: PRODUCT USED FOR UNKNOWN INDICATION
     Route: 065
     Dates: start: 20051202, end: 20060509
  9. EPIRUBICIN [Concomitant]
     Active Substance: EPIRUBICIN
     Indication: PRODUCT USED FOR UNKNOWN INDICATION
     Route: 065
     Dates: start: 20051202, end: 20060509
  10. VINORELBINE [Concomitant]
     Active Substance: VINORELBINE\VINORELBINE TARTRATE
     Indication: PRODUCT USED FOR UNKNOWN INDICATION
     Route: 065
     Dates: start: 20080922, end: 20081104
  11. XELODA [Concomitant]
     Active Substance: CAPECITABINE
     Dosage: 2400 MG, UNK
     Route: 048
     Dates: start: 20091203, end: 20100207
  12. XELODA [Concomitant]
     Active Substance: CAPECITABINE
     Dosage: 2400 MG, UNK
     Route: 048
     Dates: start: 20091102, end: 20091115
  13. ZOMETA [Concomitant]
     Active Substance: ZOLEDRONIC ACID
     Indication: BONE PAIN
     Dosage: UNK, QD
     Route: 041
     Dates: start: 20081118, end: 20100127
  14. PACLITAXEL. [Concomitant]
     Active Substance: PACLITAXEL
     Indication: PRODUCT USED FOR UNKNOWN INDICATION
     Route: 065
     Dates: start: 20071225, end: 20080408
  15. GOSERELIN ACETATE [Concomitant]
     Active Substance: GOSERELIN ACETATE
     Indication: PRODUCT USED FOR UNKNOWN INDICATION
     Dosage: 3.6 MG, QD
     Route: 058
     Dates: start: 20060523, end: 20100202
  16. DOCETAXEL. [Concomitant]
     Active Substance: DOCETAXEL
     Indication: PRODUCT USED FOR UNKNOWN INDICATION
     Route: 065
     Dates: start: 20090525, end: 20090630
  17. TYKERB [Suspect]
     Active Substance: LAPATINIB DITOSYLATE
     Indication: BREAST CANCER
     Dosage: 1250 MG, QD
     Route: 048
     Dates: start: 20090728, end: 20100207
  18. XELODA [Concomitant]
     Active Substance: CAPECITABINE
     Dosage: 2400 MG, UNK
     Route: 048
     Dates: start: 20091013, end: 20091026

REACTIONS (8)
  - White blood cell count decreased [Recovered/Resolved]
  - Diarrhoea [Recovering/Resolving]
  - Jaundice [Fatal]
  - White blood cell count decreased [Recovered/Resolved]
  - Hepatic failure [Fatal]
  - Hepatic function abnormal [Fatal]
  - White blood cell count decreased [Recovered/Resolved]
  - Hypoaesthesia [Unknown]

NARRATIVE: CASE EVENT DATE: 20090728
